FAERS Safety Report 23047086 (Version 2)
Quarter: 2023Q4

REPORT INFORMATION
  Report Type: Spontaneous
  Country: US (occurrence: US)
  Receive Date: 20231009
  Receipt Date: 20231030
  Transmission Date: 20240109
  Serious: Yes (Other)
  Sender: FDA-Public Use
  Company Number: US-ELI_LILLY_AND_COMPANY-US202310004302

PATIENT
  Age: 30 Year
  Sex: Female

DRUGS (18)
  1. STRATTERA [Suspect]
     Active Substance: ATOMOXETINE HYDROCHLORIDE
     Indication: Attention deficit hyperactivity disorder
     Dosage: 25 MG, DAILY
     Route: 065
     Dates: start: 20230625, end: 20230710
  2. STRATTERA [Suspect]
     Active Substance: ATOMOXETINE HYDROCHLORIDE
     Dosage: 25 MG, DAILY
     Route: 065
     Dates: start: 20230719
  3. CAPLYTA [Suspect]
     Active Substance: LUMATEPERONE
     Indication: Bipolar disorder
     Dosage: 42 MG, DAILY
     Route: 048
     Dates: start: 20230526, end: 20230601
  4. CAPLYTA [Suspect]
     Active Substance: LUMATEPERONE
     Indication: Affective disorder
     Dosage: 42 MG, DAILY
     Route: 048
     Dates: start: 20230602, end: 20230710
  5. CAPLYTA [Suspect]
     Active Substance: LUMATEPERONE
     Dosage: 42 MG, DAILY
     Route: 048
     Dates: start: 20230719, end: 20230726
  6. VYVANSE [Suspect]
     Active Substance: LISDEXAMFETAMINE DIMESYLATE
     Indication: Attention deficit hyperactivity disorder
     Dosage: 70 MG, EACH MORNING
     Route: 065
     Dates: start: 20230607, end: 20230710
  7. VYVANSE [Suspect]
     Active Substance: LISDEXAMFETAMINE DIMESYLATE
     Dosage: 70 MG, EACH MORNING
     Route: 065
     Dates: start: 20230719, end: 20230814
  8. VYVANSE [Suspect]
     Active Substance: LISDEXAMFETAMINE DIMESYLATE
     Dosage: 60 MG, DAILY
     Route: 065
     Dates: start: 20230815
  9. PAXIL [Suspect]
     Active Substance: PAROXETINE HYDROCHLORIDE
     Indication: Depression
     Dosage: 40 MG, DAILY
     Route: 065
     Dates: end: 20230830
  10. PAXIL [Suspect]
     Active Substance: PAROXETINE HYDROCHLORIDE
     Indication: Anxiety
     Dosage: 20 MG, DAILY
     Route: 065
     Dates: start: 20230831
  11. CLONAZEPAM [Concomitant]
     Active Substance: CLONAZEPAM
     Indication: Anxiety
  12. CLONIDINE [Concomitant]
     Active Substance: CLONIDINE
     Indication: Product used for unknown indication
     Dosage: 0.1 MG, EACH EVENING AROUND 7 PM
  13. PANTOPRAZOLE [Concomitant]
     Active Substance: PANTOPRAZOLE
     Indication: Product used for unknown indication
  14. VITAMINS NOS [Concomitant]
     Active Substance: VITAMINS
     Indication: Product used for unknown indication
  15. VITAMIN D NOS [Concomitant]
     Active Substance: VITAMIN D NOS
     Indication: Product used for unknown indication
  16. VITAMIN B [Concomitant]
     Active Substance: VITAMIN B
     Indication: Product used for unknown indication
  17. BUSPAR [Concomitant]
     Active Substance: BUSPIRONE HYDROCHLORIDE
     Indication: Product used for unknown indication
  18. VITAMIN D3 [Concomitant]
     Active Substance: CHOLECALCIFEROL
     Indication: Product used for unknown indication

REACTIONS (16)
  - Blood lactic acid increased [Unknown]
  - Fibromyalgia [Unknown]
  - Pain [Unknown]
  - Disturbance in attention [Not Recovered/Not Resolved]
  - Chest discomfort [Recovered/Resolved]
  - Dyspnoea [Recovered/Resolved]
  - Chest pain [Recovered/Resolved]
  - Poor quality sleep [Not Recovered/Not Resolved]
  - Palpitations [Recovering/Resolving]
  - Tachycardia [Recovering/Resolving]
  - Blood pressure diastolic increased [Unknown]
  - Anxiety [Recovering/Resolving]
  - Depression [Not Recovered/Not Resolved]
  - Weight decreased [Recovering/Resolving]
  - Fatigue [Recovering/Resolving]
  - Muscle spasms [Recovering/Resolving]

NARRATIVE: CASE EVENT DATE: 20230625
